FAERS Safety Report 9657055 (Version 2)
Quarter: 2014Q1

REPORT INFORMATION
  Report Type: Spontaneous
  Country: US (occurrence: US)
  Receive Date: 20131030
  Receipt Date: 20140204
  Transmission Date: 20141002
  Serious: No
  Sender: FDA-Public Use
  Company Number: US-009507513-1310USA013458

PATIENT
  Sex: Female

DRUGS (3)
  1. OXYTROL FOR WOMEN [Suspect]
     Indication: PRODUCT USED FOR UNKNOWN INDICATION
     Dosage: UNK, UNKNOWN
     Route: 062
     Dates: start: 201310
  2. OXYTROL FOR WOMEN [Suspect]
     Dosage: UNK
     Dates: start: 201401
  3. FUROSEMIDE [Suspect]
     Indication: FLUID RETENTION
     Dosage: 10 MG, UNKNOWN

REACTIONS (4)
  - Local swelling [Recovered/Resolved]
  - Dry skin [Recovered/Resolved]
  - Polydipsia [Unknown]
  - Unevaluable event [Recovered/Resolved]
